FAERS Safety Report 16863045 (Version 5)
Quarter: 2020Q1

REPORT INFORMATION
  Report Type: Report from Study
  Country: US (occurrence: US)
  Receive Date: 20190927
  Receipt Date: 20200206
  Transmission Date: 20200409
  Serious: Yes (Other)
  Sender: FDA-Public Use
  Company Number: PHEH2019US039928

PATIENT
  Sex: Female
  Weight: 71.21 kg

DRUGS (3)
  1. BRODALUMAB [Concomitant]
     Active Substance: BRODALUMAB
     Indication: PSORIASIS
     Dosage: 210 MG, Q2W
     Route: 058
     Dates: start: 20190723, end: 20190807
  2. COSENTYX [Suspect]
     Active Substance: SECUKINUMAB
     Indication: PSORIASIS
     Dosage: 300 MG, QMO
     Route: 065
     Dates: start: 20190212
  3. COSENTYX [Suspect]
     Active Substance: SECUKINUMAB
     Dosage: 300 MG, QMO
     Route: 065
     Dates: start: 20190328

REACTIONS (5)
  - Lymphadenopathy [Unknown]
  - Kidney infection [Unknown]
  - Injection site reaction [Unknown]
  - Injection site hypersensitivity [Recovered/Resolved]
  - Sinusitis [Unknown]

NARRATIVE: CASE EVENT DATE: 201903
